FAERS Safety Report 4641663-5 (Version None)
Quarter: 2005Q2

REPORT INFORMATION
  Report Type: 
  Country: None (occurrence: None)
  Receive Date: 20050420
  Receipt Date: 20050409
  Transmission Date: 20051028
  Serious: Yes (Death, Hospitalization)
  Sender: FDA-Public Use
  Company Number: 05P-056-0295486-00

PATIENT
  Age: 49 Year
  Sex: Male
  Weight: 70 kg

DRUGS (4)
  1. NORVIR [Suspect]
     Indication: HIV INFECTION
     Dosage: 200 MG, 1 IN 1 D, PER ORAL
     Route: 048
     Dates: start: 20020515, end: 20030228
  2. DIDANOSINE [Suspect]
     Indication: HIV INFECTION
     Dosage: 400 MG, 1 IN 1 D,  PER ORAL
     Route: 048
     Dates: start: 20021209, end: 20030228
  3. STAVUDINE [Suspect]
     Indication: HIV INFECTION
     Dosage: 80 MG, 1 IN 1 D, PER ORAL
     Route: 048
     Dates: start: 20021209, end: 20030228
  4. AMPRENAVIR [Suspect]
     Indication: HIV INFECTION
     Dosage: PER ORAL
     Route: 048
     Dates: start: 20020515, end: 20030228

REACTIONS (25)
  - CHEST X-RAY ABNORMAL [None]
  - CIRCULATORY COLLAPSE [None]
  - CONDITION AGGRAVATED [None]
  - DEHYDRATION [None]
  - DIARRHOEA [None]
  - FOETOR HEPATICUS [None]
  - GENERAL PHYSICAL HEALTH DETERIORATION [None]
  - HEPATITIS [None]
  - HEPATITIS CHOLESTATIC [None]
  - HYPOVOLAEMIA [None]
  - JAUNDICE [None]
  - KUSSMAUL RESPIRATION [None]
  - LACTIC ACIDOSIS [None]
  - LUNG INFECTION [None]
  - MULTI-ORGAN FAILURE [None]
  - OEDEMA PERIPHERAL [None]
  - ORAL CANDIDIASIS [None]
  - PNEUMONIA STAPHYLOCOCCAL [None]
  - PULMONARY FUNCTION TEST ABNORMAL [None]
  - PYRAMIDAL TRACT SYNDROME [None]
  - PYREXIA [None]
  - RENAL FAILURE [None]
  - SEPTIC SHOCK [None]
  - SKIN DISCOLOURATION [None]
  - VOMITING [None]
